FAERS Safety Report 13585902 (Version 1)
Quarter: 2017Q2

REPORT INFORMATION
  Report Type: Spontaneous
  Country: JP (occurrence: JP)
  Receive Date: 20170526
  Receipt Date: 20170526
  Transmission Date: 20170830
  Serious: Yes (Other)
  Sender: FDA-Public Use
  Company Number: PHJP2017JP016897

PATIENT
  Age: 45 Year
  Sex: Male

DRUGS (2)
  1. DABRAFENIB [Suspect]
     Active Substance: DABRAFENIB
     Indication: MALIGNANT MELANOMA
     Dosage: UNK
     Route: 048
  2. TRAMETINIB [Suspect]
     Active Substance: TRAMETINIB
     Indication: MALIGNANT MELANOMA
     Dosage: UNK
     Route: 048

REACTIONS (8)
  - Maculopathy [Unknown]
  - Pyrexia [Unknown]
  - Malaise [Recovering/Resolving]
  - Pruritus [Unknown]
  - Chorioretinopathy [Unknown]
  - Decreased appetite [Recovering/Resolving]
  - Blood creatine phosphokinase increased [Unknown]
  - Vision blurred [Unknown]
